FAERS Safety Report 7631505-8 (Version None)
Quarter: 2011Q3

REPORT INFORMATION
  Report Type: 
  Country: None (occurrence: None)
  Receive Date: 20110701
  Receipt Date: 20101202
  Transmission Date: 20111222
  Serious: Yes (Other)
  Sender: FDA-Public Use
  Company Number: 7030389

PATIENT
  Age: 49 Year
  Sex: Female

DRUGS (5)
  1. AMPYRA [Concomitant]
  2. VITAMIN B12 [Concomitant]
  3. ZOLOFT [Concomitant]
  4. ALEVE [Concomitant]
  5. REBIF [Suspect]
     Indication: MULTIPLE SCLEROSIS
     Dosage: 44 MCG, 3 IN 1 WK, SUBCUTANEOUS
     Route: 058
     Dates: start: 20090615

REACTIONS (2)
  - DEPRESSED MOOD [None]
  - SUICIDAL IDEATION [None]
